FAERS Safety Report 6061585-5 (Version None)
Quarter: 2009Q1

REPORT INFORMATION
  Report Type: 
  Country: None (occurrence: None)
  Receive Date: 20090202
  Receipt Date: 20090126
  Transmission Date: 20090719
  Serious: Yes (Hospitalization)
  Sender: FDA-Public Use
  Company Number: IT-ASTRAZENECA-2009SE00553

PATIENT
  Age: 15143 Day
  Sex: Female

DRUGS (3)
  1. ZOMIG [Suspect]
     Indication: HEADACHE
     Route: 048
     Dates: start: 20090119, end: 20090121
  2. SEREUPIN [Suspect]
     Indication: PANIC ATTACK
     Route: 048
     Dates: start: 20070101, end: 20090124
  3. DEBRIDAT [Suspect]
     Indication: NAUSEA
     Route: 048
     Dates: start: 20090121, end: 20090121

REACTIONS (3)
  - PRURITUS [None]
  - SKIN BURNING SENSATION [None]
  - URTICARIA [None]
